FAERS Safety Report 17510469 (Version 2)
Quarter: 2020Q2

REPORT INFORMATION
  Report Type: Spontaneous
  Country: US (occurrence: US)
  Receive Date: 20200306
  Receipt Date: 20200402
  Transmission Date: 20200713
  Serious: No
  Sender: FDA-Public Use
  Company Number: US-BIOGEN-2020BI00845982

PATIENT
  Sex: Female

DRUGS (47)
  1. IMITREX [Concomitant]
     Active Substance: SUMATRIPTAN SUCCINATE
     Indication: MIGRAINE
     Dosage: 100 MILLIGRAM, Q 2 HRS PRN
     Route: 048
  2. NITROFURANTOIN MACROCRYST [Concomitant]
     Route: 048
     Dates: start: 20180313
  3. GLUCOSE [Concomitant]
     Active Substance: DEXTROSE
     Indication: BLOOD GLUCOSE DECREASED
     Dosage: 4 GRAM, PRN
     Route: 048
  4. ABILIFY [Concomitant]
     Active Substance: ARIPIPRAZOLE
     Route: 048
  5. ACETAMINOPHEN. [Concomitant]
     Active Substance: ACETAMINOPHEN
     Route: 048
  6. ATORVASTATIN CALCIUM. [Concomitant]
     Active Substance: ATORVASTATIN CALCIUM
     Route: 048
  7. EXCEDRIN EXTRA STRENGTH [Concomitant]
     Active Substance: ACETAMINOPHEN\ASPIRIN\CAFFEINE
     Route: 065
  8. ARTIFICIAL TEARS [Concomitant]
     Active Substance: GLYCERIN\HYPROMELLOSES\POLYETHYLENE GLYCOL 400
     Dosage: 1 DROP INTO BOTH EYES, BID
     Route: 065
     Dates: start: 20160201
  9. FERROUS SULFATE. [Concomitant]
     Active Substance: FERROUS SULFATE
     Dosage: B.4.K.6 DOSAGE TEXT 325 MILLIGRAM, QD WITH BREAKFAST
     Route: 048
  10. IPRATROPIUM BROMIDE/ALBUT [Concomitant]
     Indication: DYSPNOEA
     Dosage: 3 MILLILITER BY NEBULIZATION, Q4HRS PRN
     Route: 065
     Dates: start: 20150917
  11. TECFIDERA [Suspect]
     Active Substance: DIMETHYL FUMARATE
     Indication: MULTIPLE SCLEROSIS
     Dosage: TAKE 1 CAPSULE BY MOUTH TWICE A DAY
     Route: 048
  12. TECFIDERA [Suspect]
     Active Substance: DIMETHYL FUMARATE
     Dosage: TAKE 1 CAPSULE BY MOUTH TWICE A DAY
     Route: 048
     Dates: start: 20200128
  13. ASPIRIN 81 [Concomitant]
     Active Substance: ASPIRIN
     Route: 048
  14. BENADRYL ALLERGY [Concomitant]
     Active Substance: DIPHENHYDRAMINE HYDROCHLORIDE
     Route: 048
     Dates: start: 20180514
  15. FENTANYL. [Concomitant]
     Active Substance: FENTANYL
     Dosage: 1 DOSAGE FORM ONTO SKIN, Q 3 DAYS, PATCH, EXTENDED RELEASE
     Route: 062
  16. IMODIUM A-D [Concomitant]
     Active Substance: LOPERAMIDE HYDROCHLORIDE
     Indication: DIARRHOEA
     Dosage: 2 MILLIGRAM, PRN
     Route: 048
  17. OMEPRAZOLE. [Concomitant]
     Active Substance: OMEPRAZOLE
     Dosage: 20 MILLIGRAM, QD WITH LUNCH
     Route: 048
     Dates: start: 20190107
  18. SENOKOT-S [Concomitant]
     Active Substance: DOCUSATE SODIUM\SENNOSIDES
     Route: 065
  19. DIAZEPAM. [Concomitant]
     Active Substance: DIAZEPAM
     Indication: ANXIETY
     Dosage: 5 MILLIGRAM, PRN (PRIOR TO DENTAL PROCEDURES)
     Route: 048
     Dates: start: 20180313
  20. PERICOLACE [Concomitant]
     Dosage: 1 DOSAGE FORM, QD
     Route: 048
  21. NYSTATIN. [Concomitant]
     Active Substance: NYSTATIN
     Route: 048
     Dates: start: 20180515
  22. VENLAFAXINE HYDROCHLORIDE ER [Concomitant]
     Active Substance: VENLAFAXINE HYDROCHLORIDE
     Route: 048
     Dates: start: 20191219
  23. BENZONATATE. [Concomitant]
     Active Substance: BENZONATATE
     Indication: COUGH
     Dosage: 100 MILLIGRAM, Q 8 HRS PRN
     Route: 048
  24. FLEXERIL [Concomitant]
     Active Substance: CYCLOBENZAPRINE HYDROCHLORIDE
     Dosage: 25 MCG/HR PATCH  AT ONE PATCH ONTO THE SKIN TRANSDERMAL Q 3 DAYS,
     Route: 062
     Dates: start: 20191205
  25. BISACODYL. [Concomitant]
     Active Substance: BISACODYL
     Route: 048
  26. IBUPROFEN. [Concomitant]
     Active Substance: IBUPROFEN
     Dosage: 400 MILLIGRAM, Q6HRS PRN
     Route: 048
  27. LEVOTHYROXINE SODIUM. [Concomitant]
     Active Substance: LEVOTHYROXINE SODIUM
     Dosage: 75 MICROGRAM, QD
     Route: 048
  28. GABAPENTIN. [Concomitant]
     Active Substance: GABAPENTIN
     Route: 065
     Dates: start: 20191219
  29. ALENDRONATE SODIUM. [Concomitant]
     Active Substance: ALENDRONATE SODIUM
     Dosage: 70 MILLIGRAM, WEEKLY ON WEDNESDAY
     Route: 048
  30. CYCLOBENZAPRINE HYDROCHLORIDE. [Concomitant]
     Active Substance: CYCLOBENZAPRINE HYDROCHLORIDE
     Route: 048
  31. EPINEPHRINE. [Concomitant]
     Active Substance: EPINEPHRINE
     Indication: HYPERSENSITIVITY
     Dosage: 0.3 MILLIGRAM INTO THE SKIN, PRN
     Route: 058
  32. OXCARBAZEPINE. [Concomitant]
     Active Substance: OXCARBAZEPINE
     Route: 048
     Dates: start: 20191219
  33. VENTOLIN HFA [Concomitant]
     Active Substance: ALBUTEROL SULFATE
     Route: 065
  34. VITAMIN D3 [Concomitant]
     Active Substance: CHOLECALCIFEROL
     Dosage: 1000 INTERNATIONAL UNIT, QD
     Route: 048
  35. FLUTICASONE PROPIONATE. [Concomitant]
     Active Substance: FLUTICASONE PROPIONATE
     Indication: HYPERSENSITIVITY
     Dosage: 2 SPRAYS BY EACH NOSTRIL PRN
     Route: 045
  36. VOLTAREN [Concomitant]
     Active Substance: DICLOFENAC SODIUM
     Dosage: 1 APPLICATION PRN
     Route: 061
  37. DOCUSATE SODIUM. [Concomitant]
     Active Substance: DOCUSATE SODIUM
     Route: 048
  38. NITROSTAT [Concomitant]
     Active Substance: NITROGLYCERIN
     Indication: CHEST PAIN
     Dosage: 0.4 MILLIGRAM, EVERY 5 MIN PRN
     Route: 060
     Dates: start: 20161123
  39. TRAZODONE HYDROCHLORIDE. [Concomitant]
     Active Substance: TRAZODONE HYDROCHLORIDE
     Dosage: 50 MILLIGRAM, HS
     Route: 048
  40. TOPROL XL [Concomitant]
     Active Substance: METOPROLOL SUCCINATE
     Dosage: 25 MILLIGRAM, Q 12 HRS
     Route: 048
     Dates: start: 20190311
  41. AMPYRA [Suspect]
     Active Substance: DALFAMPRIDINE
     Indication: MULTIPLE SCLEROSIS
     Route: 065
     Dates: start: 20150826
  42. CELEBREX [Concomitant]
     Active Substance: CELECOXIB
     Route: 048
  43. COPAXONE [Concomitant]
     Active Substance: GLATIRAMER ACETATE
     Dosage: 40 MILLIGRAM INTO SKIN, 3X/WK (MONDAY/WEDNESDAY/FIRDAY)
     Route: 058
  44. METOPROLOL TARTRATE. [Concomitant]
     Active Substance: METOPROLOL TARTRATE
     Route: 065
  45. PROMETHAZINE HCL [Concomitant]
     Active Substance: PROMETHAZINE HYDROCHLORIDE
     Indication: NAUSEA
     Dosage: 25 MILLIGRAM, Q 6 HRS PRN
     Route: 048
  46. RESTASIS [Concomitant]
     Active Substance: CYCLOSPORINE
     Dosage: 1 DROP INTO BOTH EYES, Q 12 HRS
     Route: 065
  47. ARTIFICIAL TEARS [Concomitant]
     Active Substance: GLYCERIN\HYPROMELLOSES\POLYETHYLENE GLYCOL 400
     Dosage: 2 DROPS INTO BOTH EYES, TID PRN
     Route: 065

REACTIONS (1)
  - Multiple sclerosis [Unknown]
